FAERS Safety Report 4351672-1 (Version None)
Quarter: 2004Q2

REPORT INFORMATION
  Report Type: 
  Country: None (occurrence: None)
  Receive Date: 20040429
  Receipt Date: 20040303
  Transmission Date: 20050107
  Serious: No
  Sender: FDA-Public Use
  Company Number: 2004-114236-NL

PATIENT
  Age: 26 Year
  Sex: Female
  Weight: 104 kg

DRUGS (3)
  1. NUVARING [Suspect]
     Indication: CONTRACEPTION
     Dosage: DF DAILY VAGINAL
     Route: 067
     Dates: start: 20040215
  2. MULTI-VITAMIN [Concomitant]
  3. TYLENOL SINUS MEDICATION [Concomitant]

REACTIONS (3)
  - ABDOMINAL PAIN LOWER [None]
  - MENORRHAGIA [None]
  - WITHDRAWAL BLEEDING IRREGULAR [None]
